FAERS Safety Report 10137056 (Version 2)
Quarter: 2014Q2

REPORT INFORMATION
  Report Type: Spontaneous
  Country: US (occurrence: None)
  Receive Date: 20140425
  Receipt Date: 20140602
  Transmission Date: 20141212
  Serious: Yes (Other)
  Sender: FDA-Public Use
  Company Number: 2014US010419

PATIENT
  Age: 64 Year
  Sex: Female

DRUGS (2)
  1. ALOXI [Suspect]
     Indication: PROPHYLAXIS OF NAUSEA AND VOMITING
     Route: 042
     Dates: start: 2014, end: 20140415
  2. DECADRON [Suspect]
     Indication: PROPHYLAXIS OF NAUSEA AND VOMITING
     Dosage: UNK, QWK, INTRAVENOUS
     Route: 042
     Dates: start: 2014, end: 20140415

REACTIONS (4)
  - Anaphylactic reaction [None]
  - Hypotension [None]
  - Chills [None]
  - Oxygen saturation decreased [None]
